FAERS Safety Report 19522439 (Version 1)
Quarter: 2021Q3

REPORT INFORMATION
  Report Type: Spontaneous
  Country: DE (occurrence: DE)
  Receive Date: 20210712
  Receipt Date: 20210712
  Transmission Date: 20211014
  Serious: Yes (Hospitalization)
  Sender: FDA-Public Use
  Company Number: DE-PFIZER INC-2021792238

PATIENT
  Age: 45 Year
  Sex: Female

DRUGS (3)
  1. EPIRUBICIN HCL [Suspect]
     Active Substance: EPIRUBICIN HYDROCHLORIDE
     Dosage: ACCORDING TO SCHEME SOLUTION FOR INJECTION/INFUSION
     Route: 042
  2. LEVETIRACETAM. [Concomitant]
     Active Substance: LEVETIRACETAM
     Dosage: 750 MG, 1?0?1?0
     Route: 048
  3. METAMIZOLE [Concomitant]
     Active Substance: METAMIZOLE
     Dosage: 500 MG, AS NEEDED
     Route: 048

REACTIONS (4)
  - Loss of consciousness [Unknown]
  - Asthenia [Unknown]
  - General physical health deterioration [Unknown]
  - Fall [Unknown]
